FAERS Safety Report 25009282 (Version 1)
Quarter: 2025Q1

REPORT INFORMATION
  Report Type: Spontaneous
  Country: US (occurrence: None)
  Receive Date: 20250225
  Receipt Date: 20250225
  Transmission Date: 20250408
  Serious: No
  Sender: FDA-CTU
  Company Number: None

PATIENT
  Age: 72 Year
  Sex: Female
  Weight: 72.45 kg

DRUGS (2)
  1. BIVIGAM [Suspect]
     Active Substance: HUMAN IMMUNOGLOBULIN G
     Indication: Immunodeficiency common variable
     Dosage: OTHER FREQUENCY : EVERY 4 WEEKS;?
     Route: 041
     Dates: start: 20241120, end: 20250221
  2. BIVIGAM [Suspect]
     Active Substance: HUMAN IMMUNOGLOBULIN G
     Indication: Immunodeficiency common variable
     Dosage: OTHER FREQUENCY : EVERY 4 WEEKS;?
     Route: 041
     Dates: start: 20241120

REACTIONS (4)
  - Rash pruritic [None]
  - Rash papular [None]
  - Chest discomfort [None]
  - Rash papular [None]

NARRATIVE: CASE EVENT DATE: 20250221
